FAERS Safety Report 4516558-8 (Version None)
Quarter: 2004Q4

REPORT INFORMATION
  Report Type: 
  Country: None (occurrence: None)
  Receive Date: 20041012
  Receipt Date: 20040628
  Transmission Date: 20050328
  Serious: No
  Sender: FDA-Public Use
  Company Number: A03200402099

PATIENT
  Age: 77 Year
  Sex: Male
  Weight: 72.5755 kg

DRUGS (5)
  1. UROXATRAL [Suspect]
     Indication: PROSTATIC DISORDER
     Dosage: 10 MG OD ORAL
     Route: 048
     Dates: start: 20040401, end: 20040701
  2. UROXATRAL [Suspect]
     Indication: PROSTATIC SPECIFIC ANTIGEN INCREASED
     Dosage: 10 MG OD ORAL
     Route: 048
     Dates: start: 20040401, end: 20040701
  3. FINASTERIDE [Concomitant]
  4. CALCITRIOL [Concomitant]
  5. FOSINOPRIL SODIUM [Concomitant]

REACTIONS (2)
  - FATIGUE [None]
  - SLEEP DISORDER [None]
